FAERS Safety Report 7932979-5 (Version None)
Quarter: 2011Q4

REPORT INFORMATION
  Report Type: 
  Country: None (occurrence: None)
  Receive Date: 20111122
  Receipt Date: 20111114
  Transmission Date: 20120403
  Serious: Yes (Other)
  Sender: FDA-Public Use
  Company Number: PHEH2011US01544

PATIENT
  Sex: Female

DRUGS (1)
  1. EXJADE [Suspect]
     Dosage: 1750 MG, DAILY
     Route: 048

REACTIONS (6)
  - VOMITING [None]
  - FLATULENCE [None]
  - RHINORRHOEA [None]
  - NAUSEA [None]
  - HEARING IMPAIRED [None]
  - VISUAL IMPAIRMENT [None]
